FAERS Safety Report 23268919 (Version 5)
Quarter: 2024Q1

REPORT INFORMATION
  Report Type: Spontaneous
  Country: ES (occurrence: ES)
  Receive Date: 20231206
  Receipt Date: 20240227
  Transmission Date: 20240410
  Serious: Yes (Other)
  Sender: FDA-Public Use
  Company Number: ES-AMGEN-ESPSP2022153243

PATIENT
  Age: 42 Year
  Sex: Male

DRUGS (7)
  1. ADALIMUMAB [Suspect]
     Active Substance: ADALIMUMAB\ISOPROPYL ALCOHOL
     Indication: Alopecia scarring
     Dosage: 160 MG (AT WEEK 0)
     Route: 058
  2. ADALIMUMAB [Suspect]
     Active Substance: ADALIMUMAB\ISOPROPYL ALCOHOL
     Dosage: 40 MG, Q2W
     Route: 058
  3. ADALIMUMAB [Suspect]
     Active Substance: ADALIMUMAB\ISOPROPYL ALCOHOL
     Dosage: 80 MG (AT WEEK 2)
     Route: 058
  4. ACITRETIN [Suspect]
     Active Substance: ACITRETIN
     Indication: Alopecia scarring
     Dosage: UNK
     Route: 048
  5. CLOBETASOL [Suspect]
     Active Substance: CLOBETASOL
     Indication: Alopecia scarring
     Dosage: UNK
     Route: 061
  6. DOXYCYCLINE [Suspect]
     Active Substance: DOXYCYCLINE
     Indication: Alopecia scarring
     Dosage: UNK
     Route: 065
  7. ISOTRETINOIN [Suspect]
     Active Substance: ISOTRETINOIN
     Indication: Alopecia scarring
     Dosage: UNK
     Route: 065

REACTIONS (4)
  - Herpes simplex [Unknown]
  - Tinea versicolour [Unknown]
  - Drug effective for unapproved indication [Unknown]
  - Off label use [Unknown]
